FAERS Safety Report 15838062 (Version 2)
Quarter: 2019Q1

REPORT INFORMATION
  Report Type: Spontaneous
  Country: US (occurrence: US)
  Receive Date: 20190117
  Receipt Date: 20190117
  Transmission Date: 20190417
  Serious: Yes (Other)
  Sender: FDA-Public Use
  Company Number: US-CELGENEUS-USA-20190104264

PATIENT
  Sex: Female
  Weight: 74 kg

DRUGS (3)
  1. POMALYST [Suspect]
     Active Substance: POMALIDOMIDE
     Indication: PLASMA CELL MYELOMA
     Dosage: 4 MILLIGRAM
     Route: 048
     Dates: start: 201401
  2. POMALYST [Suspect]
     Active Substance: POMALIDOMIDE
     Dosage: 2 MILLIGRAM
     Route: 048
     Dates: start: 201709
  3. POMALYST [Suspect]
     Active Substance: POMALIDOMIDE
     Dosage: 3-2MG
     Route: 048
     Dates: start: 201504

REACTIONS (2)
  - Middle insomnia [Not Recovered/Not Resolved]
  - Lung disorder [Not Recovered/Not Resolved]
